FAERS Safety Report 5127171-6 (Version None)
Quarter: 2006Q4

REPORT INFORMATION
  Report Type: 
  Country: None (occurrence: None)
  Receive Date: 20061013
  Receipt Date: 20060613
  Transmission Date: 20070319
  Serious: Yes (Hospitalization)
  Sender: FDA-Public Use
  Company Number: FRWYE729914JUN06

PATIENT
  Sex: Male
  Weight: 70 kg

DRUGS (4)
  1. ENBREL [Suspect]
     Indication: RHEUMATOID ARTHRITIS
     Route: 058
     Dates: start: 20050501, end: 20060301
  2. METHOTREXATE [Suspect]
     Indication: RHEUMATOID ARTHRITIS
     Dosage: 10 MG TOTAL WEEKLY
     Route: 048
     Dates: start: 20050501, end: 20051001
  3. METHOTREXATE [Suspect]
     Dosage: UNKNOWN
     Route: 048
     Dates: start: 20050101, end: 20060301
  4. FELDENE [Concomitant]
     Dosage: 20 MG TOTAL DAILY
     Route: 048
     Dates: start: 20050501

REACTIONS (10)
  - ABSCESS BACTERIAL [None]
  - DEVICE BREAKAGE [None]
  - DEVICE RELATED INFECTION [None]
  - FIBULA FRACTURE [None]
  - OSTEOMYELITIS [None]
  - POSTOPERATIVE INFECTION [None]
  - PSEUDARTHROSIS [None]
  - ROAD TRAFFIC ACCIDENT [None]
  - SKIN NECROSIS [None]
  - TIBIA FRACTURE [None]
